FAERS Safety Report 4439599-8 (Version None)
Quarter: 2004Q3

REPORT INFORMATION
  Report Type: 
  Country: None (occurrence: None)
  Receive Date: 20040902
  Receipt Date: 20040514
  Transmission Date: 20050211
  Serious: Yes (Disabling)
  Sender: FDA-Public Use
  Company Number: 200411982FR

PATIENT
  Age: 69 Year
  Sex: Female

DRUGS (2)
  1. TAXOTERE [Suspect]
     Indication: BREAST CANCER
     Route: 042
     Dates: start: 20040223, end: 20040223
  2. NEULASTA [Concomitant]
     Route: 058
     Dates: start: 20040122

REACTIONS (4)
  - OCULAR TOXICITY [None]
  - OTITIS MEDIA [None]
  - PALMAR-PLANTAR ERYTHRODYSAESTHESIA SYNDROME [None]
  - POSTNASAL DRIP [None]
